FAERS Safety Report 18886228 (Version 2)
Quarter: 2021Q2

REPORT INFORMATION
  Report Type: Report from Study
  Country: US (occurrence: US)
  Receive Date: 20210212
  Receipt Date: 20210617
  Transmission Date: 20210717
  Serious: Yes (Life-Threatening, Hospitalization, Other)
  Sender: FDA-Public Use
  Company Number: US-INCYTE CORPORATION-2021IN000714

PATIENT

DRUGS (26)
  1. JAKAFI [Suspect]
     Active Substance: RUXOLITINIB
     Dosage: 15/10 MILLIGRAM
     Route: 065
     Dates: start: 20161021, end: 20161117
  2. JAKAFI [Suspect]
     Active Substance: RUXOLITINIB
     Dosage: 20 MILLIGRAM, BID
     Route: 065
     Dates: start: 20170316, end: 20200725
  3. ZOFRAN [Concomitant]
     Active Substance: ONDANSETRON HYDROCHLORIDE
     Indication: NAUSEA
     Dosage: 8 MILLIGRAM, QD
     Route: 048
     Dates: start: 20200724, end: 20200726
  4. JAKAFI [Suspect]
     Active Substance: RUXOLITINIB
     Dosage: 15 MILLIGRAM, BID
     Route: 065
     Dates: start: 20170203, end: 20170305
  5. JAKAFI [Suspect]
     Active Substance: RUXOLITINIB
     Dosage: 10 MILLIGRAM, BID
     Route: 048
     Dates: start: 20200522, end: 20200727
  6. VERSED [Concomitant]
     Active Substance: MIDAZOLAM HYDROCHLORIDE
     Indication: SEDATION
     Dosage: 0.5 MILLIGRAM, QD
     Route: 042
     Dates: start: 20200721, end: 20200721
  7. PHENADOZ [Concomitant]
     Active Substance: PROMETHAZINE HYDROCHLORIDE
     Indication: NAUSEA
     Dosage: 25 MILLIGRAM, QD
     Route: 042
     Dates: start: 20200729, end: 20200729
  8. AMLODIPINE [Concomitant]
     Active Substance: AMLODIPINE BESYLATE
     Indication: HYPERTENSION
     Dosage: 5 MILLIGRAM, QD
     Route: 065
     Dates: start: 20180308
  9. JAKAFI [Suspect]
     Active Substance: RUXOLITINIB
     Indication: MYELOFIBROSIS
     Dosage: 10 MILLIGRAM, BID
     Route: 065
     Dates: start: 20160929, end: 20161020
  10. APREPITANT. [Concomitant]
     Active Substance: APREPITANT
     Indication: NAUSEA
     Dosage: 130 MILLIGRAM
     Route: 042
     Dates: start: 20200727, end: 20200727
  11. DEXASONE [DEXAMETHASONE] [Concomitant]
     Indication: INFLAMMATION
     Dosage: 10 MILLIGRAM
     Route: 042
     Dates: start: 20200727, end: 20200727
  12. ZOFRAN [Concomitant]
     Active Substance: ONDANSETRON HYDROCHLORIDE
     Dosage: 8 MILLIGRAM, QD
     Route: 042
     Dates: start: 20200727, end: 20200727
  13. ATORVASTATIN [Concomitant]
     Active Substance: ATORVASTATIN
     Indication: HYPERTENSION
     Dosage: 20 MILLIGRAM, QD
     Route: 065
     Dates: start: 20180308
  14. URSODIOL. [Concomitant]
     Active Substance: URSODIOL
     Indication: BLOOD BILIRUBIN
     Dosage: 500 MILLIGRAM, TID
     Route: 065
     Dates: start: 20200608, end: 20201105
  15. JAKAFI [Suspect]
     Active Substance: RUXOLITINIB
     Dosage: 20/15 MILLIGRAM
     Route: 065
     Dates: start: 20170306, end: 20170315
  16. MELPHALAN. [Concomitant]
     Active Substance: MELPHALAN
     Indication: MYELOFIBROSIS
     Dosage: 200 MILLIGRAM
     Route: 042
     Dates: start: 20200727, end: 20200727
  17. JAKAFI [Suspect]
     Active Substance: RUXOLITINIB
     Dosage: 10 MILLIGRAM, BID
     Route: 065
     Dates: start: 20161118, end: 20171118
  18. ACETAMINOPHEN. [Concomitant]
     Active Substance: ACETAMINOPHEN
     Indication: INFUSION
     Dosage: 650 MILLIGRAM
     Route: 048
     Dates: start: 20200729, end: 20200729
  19. JAKAFI [Suspect]
     Active Substance: RUXOLITINIB
     Dosage: 15/10 MILLIGRAM
     Route: 065
     Dates: start: 20170119, end: 20170202
  20. CORTEF [Concomitant]
     Active Substance: HYDROCORTISONE
     Indication: INFLAMMATION
     Dosage: 250 MILLIGRAM
     Route: 042
     Dates: start: 20200729, end: 20200729
  21. ZOFRAN [Concomitant]
     Active Substance: ONDANSETRON HYDROCHLORIDE
     Dosage: 16 MILLIGRAM, QD
     Route: 042
     Dates: start: 20200729, end: 20200729
  22. SUBLIMAZE [Concomitant]
     Active Substance: FENTANYL CITRATE
     Indication: PAIN
     Dosage: 25 MICROGRAM
     Route: 042
     Dates: start: 20200721, end: 20200721
  23. FLUDARA [Concomitant]
     Active Substance: FLUDARABINE PHOSPHATE
     Indication: MYELOFIBROSIS
     Dosage: 61 MILLIGRAM
     Route: 042
     Dates: start: 20200724, end: 20200727
  24. DEXTROSE. [Concomitant]
     Active Substance: DEXTROSE
     Indication: INFUSION
     Dosage: 1000 MILLILITER
     Route: 042
     Dates: start: 20200729, end: 20200729
  25. ASPIRIN [ACETYLSALICYLIC ACID] [Concomitant]
     Active Substance: ASPIRIN
     Indication: MYELOFIBROSIS
     Dosage: 81 MILLIGRAM, QD
     Route: 065
     Dates: start: 20180308
  26. LOPERAMIDE [Concomitant]
     Active Substance: LOPERAMIDE
     Indication: DIARRHOEA
     Dosage: 2 MILLIGRAM
     Route: 065
     Dates: start: 20200805, end: 20200810

REACTIONS (4)
  - Decreased appetite [Recovered/Resolved]
  - Hypovolaemia [Recovered/Resolved]
  - Renal tubular necrosis [Recovered/Resolved]
  - Cholestatic liver injury [Recovered/Resolved]

NARRATIVE: CASE EVENT DATE: 20200802
